FAERS Safety Report 21745030 (Version 1)
Quarter: 2022Q4

REPORT INFORMATION
  Report Type: Spontaneous
  Country: JP (occurrence: JP)
  Receive Date: 20221219
  Receipt Date: 20221219
  Transmission Date: 20230113
  Serious: Yes (Other)
  Sender: FDA-Public Use
  Company Number: JP-002147023-NVSJ2022JP276238

PATIENT
  Sex: Male

DRUGS (1)
  1. DIOVAN [Suspect]
     Active Substance: VALSARTAN
     Indication: Hypertension
     Dosage: 20 MG, QD(IN THE MORNING)
     Route: 048
     Dates: start: 20160229, end: 20220117

REACTIONS (5)
  - Pemphigus [Unknown]
  - Pruritus [Unknown]
  - Rash [Unknown]
  - Skin cancer [Unknown]
  - Blood pressure diastolic increased [Unknown]
